FAERS Safety Report 4368352-9 (Version None)
Quarter: 2004Q2

REPORT INFORMATION
  Report Type: 
  Country: None (occurrence: None)
  Receive Date: 20040525
  Receipt Date: 20040510
  Transmission Date: 20050107
  Serious: Yes (Death, Hospitalization)
  Sender: FDA-Public Use
  Company Number: L04-NZL-02282-01

PATIENT
  Age: 59 Year
  Sex: Female

DRUGS (11)
  1. DILTIAZEM [Suspect]
     Indication: ANGINA PECTORIS
     Dosage: 120 MG QD PO
     Route: 048
  2. ATORVASTATIN CALCIUM [Suspect]
     Dosage: 40 MG QD
  3. ASPIRIN COMPOUND [Concomitant]
  4. GLYCERYL TRINITRATE [Concomitant]
  5. ISOSORBID MONONITRATE [Concomitant]
  6. INSULIN [Concomitant]
  7. METOCLOPRAMIDE [Concomitant]
  8. VITAMIN D [Concomitant]
  9. OMEPRAZOLE [Concomitant]
  10. CALCIUM [Concomitant]
  11. EPOGEN [Concomitant]

REACTIONS (3)
  - ANGINA PECTORIS [None]
  - CARDIAC ARREST [None]
  - MYOSITIS [None]
